FAERS Safety Report 8813404 (Version 1)
Quarter: 2012Q4

REPORT INFORMATION
  Report Type: 
  Country: US (occurrence: US)
  Receive Date: 20120927
  Receipt Date: 20120927
  Transmission Date: 20130627
  Serious: No
  Sender: FDA-Public Use
  Company Number: US-AMGEN-USASP2012048460

PATIENT
  Age: 70 Year
  Sex: Female
  Weight: 54.42 kg

DRUGS (6)
  1. PROLIA [Suspect]
     Indication: OSTEOPOROSIS
     Dosage: 60 mg, one time dose
     Route: 058
     Dates: start: 20110107, end: 20110107
  2. COMBIVENT [Concomitant]
  3. PROAIR                             /00139502/ [Concomitant]
  4. FLOVENT [Concomitant]
  5. AMLODIPINE [Concomitant]
  6. PRAVASTATIN [Concomitant]

REACTIONS (1)
  - Bronchitis [Recovered/Resolved]
